FAERS Safety Report 7013985-4 (Version None)
Quarter: 2010Q3

REPORT INFORMATION
  Report Type: 
  Country: None (occurrence: None)
  Receive Date: 20100926
  Receipt Date: 20100915
  Transmission Date: 20110219
  Serious: Yes (Hospitalization, Other)
  Sender: FDA-Public Use
  Company Number: PHHY2010US61397

PATIENT
  Sex: Female

DRUGS (5)
  1. RECLAST [Suspect]
     Dosage: 5 MG
     Dates: start: 20090701
  2. RECLAST [Suspect]
     Dosage: 5 MG
     Dates: start: 20100826
  3. NORVASC [Concomitant]
     Dosage: 5 MG, UNK
  4. PROTONIX [Concomitant]
     Dosage: 40 MG, UNK
  5. LIPITOR [Concomitant]
     Dosage: 10 MG, UNK

REACTIONS (3)
  - ANAPHYLACTIC SHOCK [None]
  - BACK PAIN [None]
  - FALL [None]
